FAERS Safety Report 15040800 (Version 1)
Quarter: 2018Q2

REPORT INFORMATION
  Report Type: Spontaneous
  Country: US (occurrence: US)
  Receive Date: 20180530
  Receipt Date: 20180530
  Transmission Date: 20180711
  Serious: No
  Sender: FDA-Public Use
  Company Number: None

PATIENT
  Age: 55 Year
  Sex: Female

DRUGS (1)
  1. ADCIRCA [Suspect]
     Active Substance: TADALAFIL
     Indication: PULMONARY HYPERTENSION
     Route: 048
     Dates: start: 20180101, end: 20180530

REACTIONS (6)
  - Dyspnoea [None]
  - Tension [None]
  - Intraocular pressure increased [None]
  - Rhinorrhoea [None]
  - Cough [None]
  - Dizziness [None]

NARRATIVE: CASE EVENT DATE: 20180530
